FAERS Safety Report 12200424 (Version 2)
Quarter: 2016Q1

REPORT INFORMATION
  Report Type: Report from Study
  Country: CA (occurrence: CA)
  Receive Date: 20160322
  Receipt Date: 20160330
  Transmission Date: 20160526
  Serious: Yes (Hospitalization)
  Sender: FDA-Public Use
  Company Number: PHHY2015CA155492

PATIENT
  Sex: Female

DRUGS (3)
  1. METOPROLOL. [Suspect]
     Active Substance: METOPROLOL
     Indication: PRODUCT USED FOR UNKNOWN INDICATION
     Dosage: 50 MG (IN MORNING) 100 MG (AT NIGHT)
     Route: 065
  2. SANDOSTATIN [Suspect]
     Active Substance: OCTREOTIDE ACETATE
     Indication: CARCINOID TUMOUR
     Dosage: 200 UG, BID (UNTIL LAR START)
     Route: 058
     Dates: start: 20150916, end: 20151028
  3. SANDOSTATIN LAR DEPOT [Suspect]
     Active Substance: OCTREOTIDE ACETATE
     Indication: CARCINOID TUMOUR
     Dosage: 30 MG, QMO
     Route: 030
     Dates: start: 20151028

REACTIONS (5)
  - Dyspnoea [Unknown]
  - Angina pectoris [Unknown]
  - General physical health deterioration [Unknown]
  - Chest discomfort [Unknown]
  - Constipation [Unknown]
